FAERS Safety Report 21634454 (Version 2)
Quarter: 2023Q1

REPORT INFORMATION
  Report Type: Spontaneous
  Country: US (occurrence: US)
  Receive Date: 20221123
  Receipt Date: 20230102
  Transmission Date: 20230417
  Serious: Yes (Life-Threatening, Other)
  Sender: FDA-Public Use
  Company Number: US-BRISTOL-MYERS SQUIBB COMPANY-2022-141921

PATIENT
  Age: 72 Year
  Sex: Male
  Weight: 91.31 kg

DRUGS (11)
  1. REVLIMID [Suspect]
     Active Substance: LENALIDOMIDE
     Indication: Plasma cell myeloma
     Dates: start: 20200925
  2. REVLIMID [Suspect]
     Active Substance: LENALIDOMIDE
     Dates: start: 20210312, end: 20220412
  3. REVLIMID [Suspect]
     Active Substance: LENALIDOMIDE
     Dosage: 1X21 DAYS, OFF 7 DAYS
     Route: 048
     Dates: end: 20221121
  4. IMATINIB [Suspect]
     Active Substance: IMATINIB
     Indication: Gastrointestinal stromal tumour
     Dosage: COMPLETED 3 YEARS TREATMENT
     Route: 048
     Dates: start: 20160102, end: 20191231
  5. IMATINIB [Suspect]
     Active Substance: IMATINIB
     Route: 048
     Dates: start: 20201209
  6. IMATINIB [Suspect]
     Active Substance: IMATINIB
     Route: 048
     Dates: start: 20210329, end: 20221121
  7. IMATINIB [Suspect]
     Active Substance: IMATINIB
     Route: 048
     Dates: start: 2022
  8. ASPIRIN [Concomitant]
     Active Substance: ASPIRIN
     Indication: Product used for unknown indication
     Dosage: 81MG EC LOW DOSE TABLETS
  9. NAPROXEN SODIUM [Concomitant]
     Active Substance: NAPROXEN SODIUM
     Indication: Product used for unknown indication
  10. VITAMIN B12 [Concomitant]
     Active Substance: CYANOCOBALAMIN
     Indication: Product used for unknown indication
     Dosage: 2500MCG SUBL TABS 50^S
  11. VITAMIN C [Concomitant]
     Active Substance: ASCORBIC ACID
     Indication: Product used for unknown indication

REACTIONS (1)
  - Malignant neoplasm progression [Unknown]

NARRATIVE: CASE EVENT DATE: 20221110
